FAERS Safety Report 10642920 (Version 3)
Quarter: 2015Q1

REPORT INFORMATION
  Report Type: Spontaneous
  Country: CA (occurrence: CA)
  Receive Date: 20141210
  Receipt Date: 20150114
  Transmission Date: 20150720
  Serious: Yes (Other)
  Sender: FDA-Public Use
  Company Number: CA-AMGEN-CANSP2014095486

PATIENT
  Age: 71 Year
  Sex: Female
  Weight: 57 kg

DRUGS (4)
  1. MULTIVITAMIN                       /00097801/ [Concomitant]
     Active Substance: VITAMINS
     Route: 048
  2. VITAMIN B12 [Concomitant]
     Active Substance: CYANOCOBALAMIN
     Dosage: 1000 MUG, UNK
     Route: 060
  3. VITAMIN D3 [Concomitant]
     Active Substance: CHOLECALCIFEROL
     Dosage: 2000 UNIT, QD
     Route: 048
     Dates: start: 20121029
  4. PROLIA [Suspect]
     Active Substance: DENOSUMAB
     Indication: OSTEOPOROSIS POSTMENOPAUSAL
     Dosage: 60 MG, Q6MO
     Route: 058
     Dates: start: 20121029, end: 201404

REACTIONS (9)
  - Intervertebral disc degeneration [Unknown]
  - Atypical femur fracture [Unknown]
  - Scoliosis [Unknown]
  - Parkinson^s disease [Unknown]
  - Xerophthalmia [Unknown]
  - Bone density abnormal [Unknown]
  - Osteoarthritis [Unknown]
  - Dry mouth [Unknown]
  - Pain in extremity [Not Recovered/Not Resolved]

NARRATIVE: CASE EVENT DATE: 2014
